FAERS Safety Report 4389018-5 (Version None)
Quarter: 2004Q3

REPORT INFORMATION
  Report Type: 
  Country: None (occurrence: None)
  Receive Date: 20040702
  Receipt Date: 20040622
  Transmission Date: 20050211
  Serious: Yes (Hospitalization)
  Sender: FDA-Public Use
  Company Number: FR-BRISTOL-MYERS SQUIBB COMPANY-12623351

PATIENT
  Age: 2 Year
  Sex: Male
  Weight: 15 kg

DRUGS (4)
  1. ACETAMINOPHEN [Suspect]
     Indication: NASOPHARYNGITIS
     Route: 048
     Dates: start: 20040426
  2. MUCOMYST [Suspect]
     Indication: NASOPHARYNGITIS
     Route: 048
     Dates: start: 20040426
  3. ADVIL [Suspect]
     Indication: NASOPHARYNGITIS
     Route: 048
     Dates: start: 20040427, end: 20040427
  4. MAXILASE [Suspect]
     Indication: NASOPHARYNGITIS
     Route: 048
     Dates: start: 20040426

REACTIONS (5)
  - ABSCESS [None]
  - C-REACTIVE PROTEIN INCREASED [None]
  - CELLULITIS [None]
  - PERITONSILLAR ABSCESS [None]
  - WHITE BLOOD CELL COUNT INCREASED [None]
